FAERS Safety Report 10220781 (Version 8)
Quarter: 2017Q1

REPORT INFORMATION
  Report Type: Spontaneous
  Country: US (occurrence: US)
  Receive Date: 20140606
  Receipt Date: 20170324
  Transmission Date: 20170428
  Serious: No
  Sender: FDA-Public Use
  Company Number: US-PFIZER INC-2014155965

PATIENT
  Age: 56 Year
  Sex: Female
  Weight: 106 kg

DRUGS (2)
  1. LYRICA [Suspect]
     Active Substance: PREGABALIN
     Indication: DIABETIC NEUROPATHY
     Dosage: 200 MG, 2X/DAY
     Route: 048
  2. LYRICA [Suspect]
     Active Substance: PREGABALIN
     Indication: FIBROMYALGIA
     Dosage: UNK
     Route: 048

REACTIONS (8)
  - Malaise [Recovering/Resolving]
  - Nausea [Unknown]
  - Hot flush [Unknown]
  - Abdominal pain upper [Unknown]
  - Sleep disorder [Unknown]
  - Feeling abnormal [Unknown]
  - Insomnia [Unknown]
  - Pain [Unknown]
